FAERS Safety Report 11481173 (Version 1)
Quarter: 2015Q3

REPORT INFORMATION
  Report Type: Spontaneous
  Country: FR (occurrence: FR)
  Receive Date: 20150909
  Receipt Date: 20150909
  Transmission Date: 20151125
  Serious: Yes (Hospitalization, Other)
  Sender: FDA-Public Use
  Company Number: FR-UCBSA-2015028726

PATIENT
  Age: 4 Year
  Sex: Male

DRUGS (1)
  1. METHYLPHENIDATE HYDROCHLORIDE. [Suspect]
     Active Substance: METHYLPHENIDATE HYDROCHLORIDE
     Indication: PSYCHOMOTOR HYPERACTIVITY
     Dosage: 10 MG, ONCE DAILY (QD)
     Route: 048
     Dates: start: 20150701, end: 20150812

REACTIONS (9)
  - Pelvic fracture [Unknown]
  - Drug administered to patient of inappropriate age [Unknown]
  - Clavicle fracture [Unknown]
  - Abnormal behaviour [Unknown]
  - Fall [Recovered/Resolved]
  - Subdural haematoma [Unknown]
  - Pneumothorax [Unknown]
  - Pulmonary contusion [Unknown]
  - Rib fracture [Unknown]

NARRATIVE: CASE EVENT DATE: 20150701
